FAERS Safety Report 14281173 (Version 2)
Quarter: 2017Q4

REPORT INFORMATION
  Report Type: Spontaneous
  Country: PL (occurrence: PL)
  Receive Date: 20171213
  Receipt Date: 20171218
  Transmission Date: 20180321
  Serious: Yes (Other)
  Sender: FDA-Public Use
  Company Number: PL-B.I. PHARMACEUTICALS,INC./RIDGEFIELD-2017-BI-065927

PATIENT
  Age: 68 Year
  Sex: Male
  Weight: 77 kg

DRUGS (2)
  1. GILOTRIF [Suspect]
     Active Substance: AFATINIB
     Indication: NON-SMALL CELL LUNG CANCER
     Dosage: THERAPY START DATE: 08-JUN-2016
     Route: 048
     Dates: end: 20171011
  2. BETO ZK [Concomitant]
     Active Substance: METOPROLOL SUCCINATE
     Indication: PRODUCT USED FOR UNKNOWN INDICATION
     Route: 065

REACTIONS (7)
  - Malignant neoplasm progression [Recovered/Resolved]
  - Rhinalgia [Recovered/Resolved]
  - Dry skin [Recovered/Resolved]
  - Cutaneous symptom [Recovered/Resolved]
  - Skin exfoliation [Recovered/Resolved]
  - Nasal mucosal disorder [Recovered/Resolved]
  - Dry mouth [Recovered/Resolved]

NARRATIVE: CASE EVENT DATE: 201606
